FAERS Safety Report 9293959 (Version 1)
Quarter: 2013Q1

REPORT INFORMATION
  Report Type: Spontaneous
  Country: US (occurrence: None)
  Receive Date: 20121227
  Receipt Date: 20121227
  Transmission Date: 20140127
  Serious: Yes (Other)
  Sender: FDA-Public Use
  Company Number: PHEH2012US005263

PATIENT
  Age: 36 Year
  Sex: Male
  Weight: 57.6 kg

DRUGS (6)
  1. EXJADE [Suspect]
     Indication: IRON OVERLOAD
     Route: 048
     Dates: start: 2006
  2. FOLIC ACID ( FOLIC ACID) [Concomitant]
  3. COLCHICINE ( COLCHICINE) [Concomitant]
  4. NAPROSYN ( NAPROXEN) [Concomitant]
  5. VICODIN ES ( HYDROCODONE BITARTRATE, PARACETAMOL) [Concomitant]
  6. DILAUDID ( HYDROMORPHONE HYDROCHLORIDE) [Concomitant]

REACTIONS (9)
  - Sickle cell anaemia with crisis [None]
  - Diarrhoea [None]
  - Pain [None]
  - Hyperuricaemia [None]
  - Haemoglobin decreased [None]
  - Serum ferritin increased [None]
  - Gouty arthritis [None]
  - Oedema peripheral [None]
  - Pain in extremity [None]
